FAERS Safety Report 5977323-8 (Version None)
Quarter: 2008Q4

REPORT INFORMATION
  Report Type: 
  Country: None (occurrence: None)
  Receive Date: 20081203
  Receipt Date: 20081121
  Transmission Date: 20090506
  Serious: Yes (Other)
  Sender: FDA-Public Use
  Company Number: PHBS2008GR01438

PATIENT
  Age: 29 Year
  Sex: Female

DRUGS (11)
  1. GLEEVEC [Suspect]
     Indication: ACUTE MYELOID LEUKAEMIA
     Dosage: 400 MG, BID
     Route: 048
     Dates: start: 20070101
  2. GLEEVEC [Suspect]
     Dosage: 800 MG/DAY
     Route: 048
  3. GLEEVEC [Suspect]
     Dosage: 600 MG/DAY
     Route: 048
  4. DEXAMETHASONE TAB [Concomitant]
     Dosage: 10 MG/M2/DAY
     Route: 042
  5. CYCLOPHOSPHAMIDE [Concomitant]
     Dosage: 200 MG/M2/DAY
     Route: 065
  6. ALLOPURINOL [Concomitant]
     Dosage: 300 MG/DAY
     Route: 065
  7. METHOTREXATE [Concomitant]
     Dosage: 15 MG
  8. VINCRISTINE [Concomitant]
     Dosage: 2 MG
     Route: 042
  9. IDARUBICIN HCL [Concomitant]
     Dosage: 8 MG/M2
     Route: 042
  10. NEUPOGEN [Concomitant]
     Dosage: 5 UG/KG/DAY
     Route: 058
  11. OMEPRAZOLE [Concomitant]
     Indication: GASTRITIS
     Dosage: 20 MG/DAY
     Route: 065

REACTIONS (8)
  - BONE MARROW FAILURE [None]
  - ESCHERICHIA BACTERAEMIA [None]
  - HYPONATRAEMIA [None]
  - INAPPROPRIATE ANTIDIURETIC HORMONE SECRETION [None]
  - NEUTROPENIA [None]
  - PSEUDOMONAL BACTERAEMIA [None]
  - PYREXIA [None]
  - SKIN ULCER [None]
